FAERS Safety Report 10035242 (Version 1)
Quarter: 2014Q1

REPORT INFORMATION
  Report Type: Report from Study
  Country: US (occurrence: US)
  Receive Date: 20140325
  Receipt Date: 20140325
  Transmission Date: 20141002
  Serious: Yes (Hospitalization, Other)
  Sender: FDA-Public Use
  Company Number: US-ABBVIE-14P-163-1213117-00

PATIENT
  Sex: Female
  Weight: 86.26 kg

DRUGS (2)
  1. HUMIRA [Suspect]
     Indication: PRODUCT USED FOR UNKNOWN INDICATION
     Route: 058
     Dates: start: 2005, end: 2011
  2. UNKNOWN MEDICATION [Suspect]
     Indication: PRODUCT USED FOR UNKNOWN INDICATION

REACTIONS (16)
  - Basedow^s disease [Not Recovered/Not Resolved]
  - Mental disorder [Recovered/Resolved]
  - Mental disorder [Recovered/Resolved]
  - Suicide attempt [Recovered/Resolved]
  - Overdose [Recovered/Resolved]
  - Post-traumatic stress disorder [Not Recovered/Not Resolved]
  - Dermatitis contact [Recovered/Resolved]
  - Arthropod bite [Recovered/Resolved]
  - Cough [Recovered/Resolved]
  - Rash [Not Recovered/Not Resolved]
  - Weight decreased [Unknown]
  - Arthritis [Not Recovered/Not Resolved]
  - Nausea [Not Recovered/Not Resolved]
  - Decreased appetite [Not Recovered/Not Resolved]
  - Insomnia [Not Recovered/Not Resolved]
  - Memory impairment [Not Recovered/Not Resolved]
